FAERS Safety Report 10221445 (Version 2)
Quarter: 2014Q2

REPORT INFORMATION
  Report Type: Report from Study
  Country: JP (occurrence: JP)
  Receive Date: 20140606
  Receipt Date: 20140606
  Transmission Date: 20141212
  Serious: Yes (Life-Threatening, Hospitalization)
  Sender: FDA-Public Use
  Company Number: JP-PFIZER INC-2013369224

PATIENT
  Age: 54 Year
  Sex: Female
  Weight: 54.8 kg

DRUGS (16)
  1. XALKORI [Suspect]
     Indication: NON-SMALL CELL LUNG CANCER
     Dosage: 250 MG, 2X/DAY
     Route: 048
     Dates: start: 20130131, end: 20130226
  2. NAUZELIN OD [Concomitant]
     Dosage: 10 MG, AS NEEDED
     Route: 048
     Dates: start: 20130131, end: 20130424
  3. HUSTAZOL [Concomitant]
     Dosage: 10 MG, 3X/DAY
     Route: 048
     Dates: start: 20130131, end: 20130225
  4. TEPRENONE [Concomitant]
     Dosage: 50 MG, 3X/DAY
     Route: 048
     Dates: start: 20130131, end: 20130225
  5. ETODOLAC [Concomitant]
     Dosage: 200 MG, 2X/DAY
     Route: 048
     Dates: start: 20130131, end: 20130225
  6. TERPERAN [Concomitant]
     Dosage: 5 MG, 3X/DAY
     Route: 048
     Dates: start: 20130203, end: 20130225
  7. MAGMITT [Concomitant]
     Dosage: 330 MG, AS NEEDED
     Route: 048
     Dates: start: 20130131, end: 20130424
  8. SOLACET F [Concomitant]
     Dosage: 500 ML, 1X/DAY
     Dates: start: 20130131, end: 20130225
  9. KYTRIL [Concomitant]
     Dosage: 1 MG, AS NEEDED
     Route: 048
     Dates: start: 20130203, end: 20130424
  10. DEXTROSE [Concomitant]
     Dosage: 20 ML, 1X/DAY
     Dates: start: 20130205, end: 20130225
  11. PIPERACILLIN SODIUM [Concomitant]
     Dosage: 2 G, 2X/DAY
     Route: 042
     Dates: start: 20130208, end: 20130220
  12. VEEN D [Concomitant]
     Dosage: 500 ML, 1X/DAY
     Dates: start: 20130208, end: 20130225
  13. HOKUNALIN [Concomitant]
     Indication: UPPER RESPIRATORY TRACT INFLAMMATION
     Dosage: 2 MG, 1X/DAY
     Route: 062
     Dates: start: 20130210, end: 20130313
  14. TAMIFLU [Concomitant]
     Dosage: 75 MG, 1X/DAY
     Route: 048
     Dates: start: 20130210, end: 20130216
  15. FUROSEMIDE [Concomitant]
     Dosage: 20 MG, 1X/DAY
     Route: 048
     Dates: start: 20130212, end: 20130225
  16. BROCIN-CODEINE [Concomitant]
     Dosage: 2 ML, AS NEEDED
     Route: 048
     Dates: start: 20130131

REACTIONS (2)
  - Bronchitis [Recovering/Resolving]
  - Interstitial lung disease [Recovered/Resolved]
